FAERS Safety Report 5932427-0 (Version None)
Quarter: 2008Q4

REPORT INFORMATION
  Report Type: 
  Country: None (occurrence: None)
  Receive Date: 20081027
  Receipt Date: 20081027
  Transmission Date: 20090506
  Serious: Yes (Other)
  Sender: FDA-Public Use
  Company Number: None

PATIENT
  Age: 26 Year
  Sex: Female
  Weight: 74.8435 kg

DRUGS (2)
  1. CLONAZEPAM [Suspect]
     Indication: ANXIETY
     Dosage: 1 TABLET 4 X/DAY AS NEEDED PO
     Route: 048
     Dates: start: 20081018, end: 20081023
  2. CLONAZEPAM [Suspect]
     Indication: SOCIAL PROBLEM
     Dosage: 1 TABLET 4 X/DAY AS NEEDED PO
     Route: 048
     Dates: start: 20081018, end: 20081023

REACTIONS (8)
  - ABNORMAL BEHAVIOUR [None]
  - ANGER [None]
  - CONVERSION DISORDER [None]
  - HALLUCINATION [None]
  - HALLUCINATION, AUDITORY [None]
  - HOMICIDAL IDEATION [None]
  - INTENTIONAL SELF-INJURY [None]
  - RESTLESSNESS [None]
